FAERS Safety Report 5096410-2 (Version None)
Quarter: 2006Q3

REPORT INFORMATION
  Report Type: 
  Country: None (occurrence: None)
  Receive Date: 20060831
  Receipt Date: 20060821
  Transmission Date: 20061208
  Serious: Yes (Other)
  Sender: FDA-Public Use
  Company Number: 2006102610

PATIENT
  Age: 19 Year
  Sex: Female
  Weight: 61.2356 kg

DRUGS (4)
  1. GEODON [Suspect]
     Indication: AFFECTIVE DISORDER
     Dosage: 120 MG (60 MG, 2 IN 1 D)
     Dates: start: 20060504
  2. EFFEXOR [Concomitant]
  3. FLUOXETINE [Concomitant]
  4. ADDERALL 10 [Concomitant]

REACTIONS (5)
  - AKATHISIA [None]
  - CIRCADIAN RHYTHM SLEEP DISORDER [None]
  - FATIGUE [None]
  - NARCOLEPSY [None]
  - SLEEP DISORDER [None]
